FAERS Safety Report 6778711 (Version 10)
Quarter: 2014Q2

REPORT INFORMATION
  Report Type: Report from Study
  Country: US (occurrence: US)
  Receive Date: 20081003
  Receipt Date: 20140403
  Transmission Date: 20141212
  Serious: Yes (Hospitalization)
  Sender: FDA-Public Use
  Company Number: US-PFIZER INC-2008078817

PATIENT
  Age: 76 Year
  Sex: Female
  Weight: 129.71 kg

DRUGS (42)
  1. BLINDED CELECOXIB [Suspect]
     Indication: OSTEOARTHRITIS
     Dosage: 3X/DAY
     Route: 048
     Dates: start: 20070829
  2. BLINDED IBUPROFEN [Suspect]
     Indication: OSTEOARTHRITIS
     Dosage: 3X/DAY
     Route: 048
     Dates: start: 20070829
  3. BLINDED IBUPROFEN [Suspect]
     Indication: OSTEOARTHRITIS
     Dosage: 3X/DAY
     Route: 048
     Dates: start: 20070829
  4. BLINDED IBUPROFEN [Suspect]
     Indication: OSTEOARTHRITIS
     Dosage: 3X/DAY
     Route: 048
     Dates: start: 20070829
  5. BLINDED NAPROXEN [Suspect]
     Indication: OSTEOARTHRITIS
     Dosage: 3X/DAY
     Route: 048
     Dates: start: 20070829
  6. BLINDED NAPROXEN [Suspect]
     Indication: OSTEOARTHRITIS
     Dosage: 3X/DAY
     Route: 048
     Dates: start: 20070829
  7. BLINDED NAPROXEN [Suspect]
     Indication: OSTEOARTHRITIS
     Dosage: 3X/DAY
     Route: 048
     Dates: start: 20070829
  8. BLINDED PLACEBO [Suspect]
     Indication: OSTEOARTHRITIS
     Dosage: 3X/DAY
     Route: 048
     Dates: start: 20070829
  9. BLINDED CELECOXIB [Suspect]
     Indication: RHEUMATOID ARTHRITIS
  10. BLINDED IBUPROFEN [Suspect]
     Indication: RHEUMATOID ARTHRITIS
  11. BLINDED IBUPROFEN [Suspect]
     Indication: RHEUMATOID ARTHRITIS
  12. BLINDED IBUPROFEN [Suspect]
     Indication: RHEUMATOID ARTHRITIS
  13. BLINDED NAPROXEN [Suspect]
     Indication: RHEUMATOID ARTHRITIS
  14. BLINDED NAPROXEN [Suspect]
     Indication: RHEUMATOID ARTHRITIS
  15. BLINDED NAPROXEN [Suspect]
     Indication: RHEUMATOID ARTHRITIS
  16. BLINDED PLACEBO [Suspect]
     Indication: RHEUMATOID ARTHRITIS
  17. DETROL LA [Suspect]
     Indication: HYPERTONIC BLADDER
     Dosage: 4MG, 1X/DAY
     Route: 048
     Dates: start: 20080625, end: 20080709
  18. NEXIUM [Concomitant]
     Indication: GASTROOESOPHAGEAL REFLUX DISEASE
     Dosage: 40 MG, 1X/DAY
     Route: 048
     Dates: start: 20070829, end: 20100712
  19. NEXIUM [Concomitant]
     Indication: PROPHYLAXIS
  20. ISOSORBIDE [Concomitant]
     Dosage: 60 MG, 1X/DAY
     Route: 048
  21. LISINOPRIL [Concomitant]
     Indication: HYPERTENSION
     Dosage: 40MG, 2X/DAY
     Route: 048
     Dates: end: 20080909
  22. HYDRALAZINE [Concomitant]
     Indication: HYPERTENSION
     Dosage: 25 MG, 2X/DAY
     Route: 048
  23. DICLOFENAC [Concomitant]
     Indication: RHEUMATOID ARTHRITIS
     Dosage: 75 MG, 2X/DAY
     Route: 048
     Dates: end: 20080909
  24. BUPROPION [Concomitant]
     Indication: DEPRESSION
     Dosage: 150 MG, 2X/DAY
     Route: 048
     Dates: end: 20080909
  25. KCL [Concomitant]
     Indication: MINERAL SUPPLEMENTATION
     Dosage: 10 MEQ, 2X/DAY
     Route: 048
     Dates: end: 20080909
  26. LASIX [Concomitant]
     Indication: DIURETIC THERAPY
     Dosage: 80 MG, 1X/DAY
     Route: 048
  27. METFORMIN [Concomitant]
     Indication: DIABETES MELLITUS
     Dosage: 1000 MG, 2X/DAY
     Route: 048
  28. AMLODIPINE [Concomitant]
     Indication: HYPERTENSION
     Dosage: 5 MG, 1X/DAY
     Route: 048
  29. GLIPIZIDE [Concomitant]
     Indication: DIABETES MELLITUS
     Dosage: 20 MG, 1X/DAY
     Route: 048
  30. CITALOPRAM [Concomitant]
     Indication: DEPRESSION
     Dosage: 60 MG, 1X/DAY, QPM
     Route: 048
  31. TOPROL [Concomitant]
     Indication: HYPERTENSION
     Dosage: 200 MG, 1X/DAY
     Route: 048
  32. SIMVASTATIN [Concomitant]
     Indication: HYPERCHOLESTEROLAEMIA
     Dosage: 40 MG, 1X/DAY
     Route: 048
     Dates: end: 20080909
  33. LORAZEPAM [Concomitant]
     Indication: ANXIETY
     Dosage: PRN
     Route: 048
  34. ALBUTEROL [Concomitant]
     Indication: DYSPNOEA
     Dosage: PRN
     Route: 055
  35. OXYMETAZOLINE [Concomitant]
     Indication: NASAL CONGESTION
     Dosage: PRN
     Route: 045
  36. TUMS [Concomitant]
     Indication: DYSPEPSIA
     Dosage: 1-2 TABS PRN
     Route: 048
  37. FLONASE [Concomitant]
     Indication: HYPERSENSITIVITY
     Dosage: PRN
     Route: 045
  38. DARVOCET-N [Concomitant]
     Indication: PAIN
     Dosage: 1 DF, AS NEEDED
     Route: 048
  39. TYLENOL [Concomitant]
     Indication: PAIN
     Dosage: PRN
     Route: 048
  40. TYLENOL PM [Concomitant]
     Indication: PAIN
     Dosage: AS NEEDED
     Route: 048
  41. TYLENOL PM [Concomitant]
     Indication: SLEEP DISORDER
  42. AMBIEN [Concomitant]
     Indication: INSOMNIA
     Dosage: PRN
     Route: 048

REACTIONS (1)
  - Encephalopathy [Recovered/Resolved]
